FAERS Safety Report 9780373 (Version 1)
Quarter: 2013Q4

REPORT INFORMATION
  Report Type: Spontaneous
  Country: AT (occurrence: AT)
  Receive Date: 20131224
  Receipt Date: 20131224
  Transmission Date: 20140711
  Serious: Yes (Hospitalization)
  Sender: FDA-Public Use
  Company Number: AT-AMGEN-AUTSP2013089779

PATIENT
  Sex: Female
  Weight: 64 kg

DRUGS (1)
  1. ENBREL [Suspect]
     Indication: RHEUMATOID ARTHRITIS
     Dosage: 50 MG, 1 DF EVERY 10 DAYS
     Route: 065
     Dates: start: 2007, end: 201307

REACTIONS (5)
  - Encephalitis [Not Recovered/Not Resolved]
  - Visual field defect [Not Recovered/Not Resolved]
  - Vestibular neuronitis [Not Recovered/Not Resolved]
  - Demyelination [Not Recovered/Not Resolved]
  - Optic neuritis [Not Recovered/Not Resolved]
